FAERS Safety Report 7282048-5 (Version None)
Quarter: 2011Q1

REPORT INFORMATION
  Report Type: 
  Country: None (occurrence: None)
  Receive Date: 20110208
  Receipt Date: 20110121
  Transmission Date: 20110831
  Serious: Yes (Hospitalization)
  Sender: FDA-Public Use
  Company Number: PHHY2011JP05472

PATIENT
  Age: 63 Year
  Sex: Male

DRUGS (3)
  1. METHYLPREDNISOLONE [Suspect]
     Indication: GOODPASTURE'S SYNDROME
  2. CYCLOPHOSPHAMIDE [Suspect]
     Indication: GOODPASTURE'S SYNDROME
  3. PREDNISOLONE [Suspect]
     Indication: GOODPASTURE'S SYNDROME
     Route: 048

REACTIONS (3)
  - PNEUMONIA CYTOMEGALOVIRAL [None]
  - PULMONARY ALVEOLAR HAEMORRHAGE [None]
  - HAEMOPTYSIS [None]
